FAERS Safety Report 7994329-8 (Version None)
Quarter: 2011Q4

REPORT INFORMATION
  Report Type: 
  Country: None (occurrence: None)
  Receive Date: 20111220
  Receipt Date: 20101221
  Transmission Date: 20120403
  Serious: No
  Sender: FDA-Public Use
  Company Number: US-GLAXOSMITHKLINE-A0900990A

PATIENT
  Age: 65 Year
  Sex: Female

DRUGS (5)
  1. HORMONE [Concomitant]
  2. SORIATANE [Suspect]
     Indication: ECZEMA
     Dosage: 25MG PER DAY
     Route: 048
     Dates: start: 20101101
  3. DOXEPIN [Concomitant]
  4. PRILOSEC [Concomitant]
  5. BENICAR [Concomitant]

REACTIONS (2)
  - PRURITUS [None]
  - RASH MACULAR [None]
